FAERS Safety Report 13577999 (Version 1)
Quarter: 2017Q2

REPORT INFORMATION
  Report Type: Spontaneous
  Country: IT (occurrence: IT)
  Receive Date: 20170524
  Receipt Date: 20170524
  Transmission Date: 20170830
  Serious: Yes (Life-Threatening)
  Sender: FDA-Public Use
  Company Number: IT-BAYER-2017-092112

PATIENT
  Age: 70 Year
  Sex: Male
  Weight: 75 kg

DRUGS (1)
  1. CIPROXIN 400/200 MG/ML [Suspect]
     Active Substance: CIPROFLOXACIN
     Indication: PERITONITIS
     Dosage: DAILY DOSE 400 MG
     Route: 042
     Dates: start: 20170225, end: 20170225

REACTIONS (1)
  - Atrial fibrillation [Recovered/Resolved]

NARRATIVE: CASE EVENT DATE: 20170225
